FAERS Safety Report 13704543 (Version 2)
Quarter: 2017Q3

REPORT INFORMATION
  Report Type: Spontaneous
  Country: JP (occurrence: JP)
  Receive Date: 20170630
  Receipt Date: 20170816
  Transmission Date: 20171127
  Serious: Yes (Hospitalization)
  Sender: FDA-Public Use
  Company Number: JP-ROCHE-1956600

PATIENT
  Age: 89 Year
  Sex: Female

DRUGS (2)
  1. CEFTRIAXONE SODIUM. [Suspect]
     Active Substance: CEFTRIAXONE SODIUM
     Indication: EMPHYSEMATOUS CYSTITIS
     Dosage: DOSAGE IS UNCERTAIN.
     Route: 042
  2. CEFTRIAXONE SODIUM. [Suspect]
     Active Substance: CEFTRIAXONE SODIUM
     Indication: PNEUMONIA ASPIRATION

REACTIONS (5)
  - Biliary dilatation [Unknown]
  - Bile duct stone [Unknown]
  - Cholelithiasis [Unknown]
  - Cholecystitis acute [Recovering/Resolving]
  - Cholangitis acute [Recovering/Resolving]
